FAERS Safety Report 11758301 (Version 1)
Quarter: 2015Q4

REPORT INFORMATION
  Report Type: Report from Study
  Country: PT (occurrence: PT)
  Receive Date: 20151120
  Receipt Date: 20151120
  Transmission Date: 20160304
  Serious: Yes (Death, Hospitalization)
  Sender: FDA-Public Use
  Company Number: PT-ROCHE-1523418

PATIENT
  Age: 26 Year
  Sex: Female

DRUGS (2)
  1. ZANAMIVIR [Suspect]
     Active Substance: ZANAMIVIR
     Indication: INFLUENZA
     Route: 065
  2. OSELTAMIVIR [Suspect]
     Active Substance: OSELTAMIVIR
     Indication: INFLUENZA
     Route: 065
     Dates: start: 20110114

REACTIONS (4)
  - Drug ineffective [Unknown]
  - Pathogen resistance [Unknown]
  - Maternal exposure during pregnancy [Unknown]
  - Multi-organ failure [Fatal]
